FAERS Safety Report 17705740 (Version 1)
Quarter: 2020Q2

REPORT INFORMATION
  Report Type: Spontaneous
  Country: US (occurrence: US)
  Receive Date: 20200424
  Receipt Date: 20200424
  Transmission Date: 20200714
  Serious: No
  Sender: FDA-Public Use
  Company Number: US-ELI_LILLY_AND_COMPANY-US202004008265

PATIENT
  Sex: Female

DRUGS (1)
  1. DULAGLUTIDE. [Suspect]
     Active Substance: DULAGLUTIDE
     Indication: BLOOD GLUCOSE ABNORMAL
     Dosage: 1.5 MG, UNKNOWN
     Route: 065
     Dates: start: 20200416

REACTIONS (3)
  - Injury associated with device [Unknown]
  - Product dose omission [Unknown]
  - Haemorrhage [Unknown]
